FAERS Safety Report 16413608 (Version 1)
Quarter: 2019Q2

REPORT INFORMATION
  Report Type: Spontaneous
  Country: NL (occurrence: NL)
  Receive Date: 20190611
  Receipt Date: 20190611
  Transmission Date: 20190711
  Serious: Yes (Other)
  Sender: FDA-Public Use
  Company Number: NL-TEVA-2019-NL-1060823

PATIENT
  Sex: Male
  Weight: 74 kg

DRUGS (1)
  1. MINOCYCLINE TABLET, 100 MG (MILLIGRAM) [Suspect]
     Active Substance: MINOCYCLINE HYDROCHLORIDE
     Indication: ROSACEA
     Dosage: 100 MILLIGRAM DAILY; 1 X DAYS 1 TABLET
     Dates: start: 20190328, end: 20190402

REACTIONS (1)
  - Pneumonia [Recovered/Resolved]
